FAERS Safety Report 6181823-8 (Version None)
Quarter: 2009Q2

REPORT INFORMATION
  Report Type: 
  Country: None (occurrence: None)
  Receive Date: 20090506
  Receipt Date: 20090427
  Transmission Date: 20091009
  Serious: Yes (Hospitalization, Other)
  Sender: FDA-Public Use
  Company Number: PHHY2009BR16604

PATIENT
  Age: 76 Year
  Sex: Female
  Weight: 66 kg

DRUGS (2)
  1. ACLASTA [Suspect]
     Indication: OSTEOPOROSIS
     Dosage: UNK
     Dates: start: 20090424
  2. ENALAPRIL MALEATE [Concomitant]
     Indication: HYPERTENSION
     Dosage: 1 TAB/DAY
     Route: 048
     Dates: start: 20050101

REACTIONS (12)
  - ABASIA [None]
  - AGITATION [None]
  - DIZZINESS [None]
  - ERYTHEMA [None]
  - FALL [None]
  - HALLUCINATION [None]
  - MUSCULOSKELETAL STIFFNESS [None]
  - PARAESTHESIA ORAL [None]
  - PARALYSIS [None]
  - PYREXIA [None]
  - SPEECH DISORDER [None]
  - WHEEZING [None]
